FAERS Safety Report 5227128-0 (Version None)
Quarter: 2007Q1

REPORT INFORMATION
  Report Type: 
  Country: None (occurrence: None)
  Receive Date: 20070201
  Receipt Date: 20070201
  Transmission Date: 20070707
  Serious: Yes (Hospitalization)
  Sender: FDA-Public Use
  Company Number: None

PATIENT
  Age: 88 Year
  Sex: Female

DRUGS (9)
  1. DILTIAZEM [Suspect]
     Indication: ATRIAL FIBRILLATION
     Dosage: 240MG CD DAILY PO
     Route: 048
  2. WARFARIN SODIUM [Concomitant]
  3. .. [Concomitant]
  4. ADVAIR DISKUS 250/50 [Concomitant]
  5. CALCIUM WITH VITAMIN D [Concomitant]
  6. ASPIRIN [Concomitant]
  7. GLUCOSAMINE [Concomitant]
  8. FOSAMAX [Concomitant]
  9. SYNTHROID [Concomitant]

REACTIONS (8)
  - ACUTE GENERALISED EXANTHEMATOUS PUSTULOSIS [None]
  - DRUG ERUPTION [None]
  - EXFOLIATIVE RASH [None]
  - ORF [None]
  - PAIN [None]
  - PRURITUS [None]
  - PUSTULAR PSORIASIS [None]
  - WHITE BLOOD CELL COUNT INCREASED [None]
